FAERS Safety Report 13430756 (Version 1)
Quarter: 2017Q2

REPORT INFORMATION
  Report Type: Spontaneous
  Country: IN (occurrence: IN)
  Receive Date: 20170412
  Receipt Date: 20170412
  Transmission Date: 20170830
  Serious: Yes (Other)
  Sender: FDA-Public Use
  Company Number: IN-STRIDES ARCOLAB LIMITED-2017SP006189

PATIENT

DRUGS (4)
  1. IMIQUIMOD. [Suspect]
     Active Substance: IMIQUIMOD
     Indication: BOWEN^S DISEASE
     Dosage: UNK
     Route: 061
  2. NEVIRAPINE. [Concomitant]
     Active Substance: NEVIRAPINE
     Indication: ANTIRETROVIRAL THERAPY
     Dosage: UNK
     Route: 065
  3. ZIDOVUDINE. [Concomitant]
     Active Substance: ZIDOVUDINE
     Indication: ANTIRETROVIRAL THERAPY
     Dosage: UNK
     Route: 065
  4. LAMIVUDINE. [Concomitant]
     Active Substance: LAMIVUDINE
     Indication: ANTIRETROVIRAL THERAPY
     Dosage: UNK
     Route: 065

REACTIONS (2)
  - Drug ineffective for unapproved indication [Unknown]
  - Off label use [Unknown]
